FAERS Safety Report 9472205 (Version 1)
Quarter: 2013Q3

REPORT INFORMATION
  Report Type: Spontaneous
  Country: US (occurrence: None)
  Receive Date: 20130821
  Receipt Date: 20130821
  Transmission Date: 20140515
  Serious: Yes (Disabling)
  Sender: FDA-Public Use
  Company Number: None

PATIENT
  Age: 22 Year
  Sex: Male
  Weight: 81.65 kg

DRUGS (1)
  1. LARIAM [Suspect]
     Indication: MALARIA
     Route: 048
     Dates: start: 19921215, end: 19930118

REACTIONS (14)
  - Plasmodium falciparum infection [None]
  - Tinnitus [None]
  - Balance disorder [None]
  - Tremor [None]
  - Panic attack [None]
  - Anxiety [None]
  - Depression [None]
  - Hypothyroidism [None]
  - Thinking abnormal [None]
  - Memory impairment [None]
  - Disturbance in attention [None]
  - Mood swings [None]
  - Nightmare [None]
  - Night sweats [None]
